FAERS Safety Report 4874055-4 (Version None)
Quarter: 2005Q4

REPORT INFORMATION
  Report Type: 
  Country: None (occurrence: None)
  Receive Date: 20051201
  Receipt Date: 20050803
  Transmission Date: 20060501
  Serious: No
  Sender: FDA-Public Use
  Company Number: 2005PV000948

PATIENT
  Age: 58 Year
  Sex: Female
  Weight: 88.4514 kg

DRUGS (11)
  1. BYETTA [Suspect]
     Indication: DIABETES MELLITUS NON-INSULIN-DEPENDENT
     Dosage: 5 MCG; BID, SC
     Route: 058
     Dates: start: 20050801
  2. GLUCOPHAGE [Concomitant]
  3. LANTUS [Concomitant]
  4. HUMALOG [Concomitant]
  5. WELLBUTRIN [Concomitant]
  6. LEXAPRO [Concomitant]
  7. ATENOLOL [Concomitant]
  8. COZAAR [Concomitant]
  9. ASPIRIN [Concomitant]
  10. EZETIMIBE [Concomitant]
  11. CORTISONE ACETATE TAB [Concomitant]

REACTIONS (3)
  - FATIGUE [None]
  - NAUSEA [None]
  - VOMITING [None]
